FAERS Safety Report 7746133-3 (Version None)
Quarter: 2011Q3

REPORT INFORMATION
  Report Type: 
  Country: None (occurrence: None)
  Receive Date: 20110913
  Receipt Date: 20110831
  Transmission Date: 20111222
  Serious: Yes (Hospitalization)
  Sender: FDA-Public Use
  Company Number: US-ELI_LILLY_AND_COMPANY-US201109000501

PATIENT
  Sex: Female

DRUGS (7)
  1. POTASSIUM [Concomitant]
  2. CALCIUM CARBONATE [Concomitant]
  3. FORTEO [Suspect]
     Indication: OSTEOPOROSIS
     Dosage: 20 UG, QD
     Dates: start: 20101101
  4. ORENCIA [Concomitant]
  5. PREDNISONE [Concomitant]
  6. FORTEO [Suspect]
     Dosage: 20 UG, QD
  7. VITAMIN D [Concomitant]

REACTIONS (1)
  - JOINT ARTHROPLASTY [None]
